FAERS Safety Report 5535819-7 (Version None)
Quarter: 2007Q4

REPORT INFORMATION
  Report Type: 
  Country: None (occurrence: None)
  Receive Date: 20071204
  Receipt Date: 20071204
  Transmission Date: 20080405
  Serious: No
  Sender: FDA-Public Use
  Company Number: None

PATIENT
  Sex: Male
  Weight: 105.2345 kg

DRUGS (2)
  1. CIPROFLOXACIN [Suspect]
     Indication: EPIDIDYMITIS
     Dosage: 250 MG  3/DAY  PO
     Route: 048
     Dates: start: 20070911, end: 20070914
  2. CIPROFLOXACIN [Suspect]
     Indication: HERNIA
     Dosage: 250 MG  3/DAY  PO
     Route: 048
     Dates: start: 20070911, end: 20070914

REACTIONS (5)
  - BURNING SENSATION [None]
  - DRUG ERUPTION [None]
  - HYPOAESTHESIA [None]
  - PARAESTHESIA [None]
  - PRURITUS [None]
